FAERS Safety Report 11108631 (Version 2)
Quarter: 2015Q2

REPORT INFORMATION
  Report Type: Spontaneous
  Country: US (occurrence: US)
  Receive Date: 20150513
  Receipt Date: 20150520
  Transmission Date: 20150821
  Serious: Yes (Hospitalization, Other)
  Sender: FDA-Public Use
  Company Number: US-ASTRAZENECA-2015SE42996

PATIENT
  Age: 15443 Day
  Sex: Female
  Weight: 77.1 kg

DRUGS (22)
  1. VESICARE [Concomitant]
     Active Substance: SOLIFENACIN SUCCINATE
     Indication: RENAL DISORDER
     Route: 048
     Dates: start: 2012
  2. HYDROCODONE [Concomitant]
     Active Substance: HYDROCODONE
     Indication: PAIN
     Dosage: 3.7/ 325 MG  AS REQUIRED
     Route: 048
     Dates: start: 1998
  3. PHENERGAN [Concomitant]
     Active Substance: PROMETHAZINE HYDROCHLORIDE
     Indication: ANTIEMETIC SUPPORTIVE CARE
     Route: 054
     Dates: start: 1998
  4. PHENERGAN [Concomitant]
     Active Substance: PROMETHAZINE HYDROCHLORIDE
     Indication: NAUSEA
     Route: 054
     Dates: start: 1998
  5. NEXIUM [Suspect]
     Active Substance: ESOMEPRAZOLE MAGNESIUM
     Indication: ANTACID THERAPY
     Dosage: NEXIUM OTC, 22.3 MG TWO TIMES A DAY
     Route: 048
     Dates: start: 20150505
  6. MELATONIN [Concomitant]
     Active Substance: MELATONIN
     Indication: SLEEP DISORDER
     Route: 048
     Dates: start: 2012
  7. XANAX [Concomitant]
     Active Substance: ALPRAZOLAM
     Indication: LEARNING DISABILITY
     Route: 048
     Dates: start: 2014
  8. BENTYL [Concomitant]
     Active Substance: DICYCLOMINE HYDROCHLORIDE
     Indication: ABDOMINAL PAIN UPPER
     Route: 048
     Dates: start: 2014
  9. NEXIUM [Suspect]
     Active Substance: ESOMEPRAZOLE MAGNESIUM
     Indication: ANTACID THERAPY
     Route: 048
     Dates: end: 201503
  10. XANAX [Concomitant]
     Active Substance: ALPRAZOLAM
     Indication: FEELING ABNORMAL
     Route: 048
     Dates: start: 2014
  11. ASPIRIN. [Concomitant]
     Active Substance: ASPIRIN
     Indication: BLOOD PRESSURE ABNORMAL
     Route: 048
     Dates: start: 1985, end: 201501
  12. ALBUTEROL INHALER [Concomitant]
     Active Substance: ALBUTEROL
     Indication: BRONCHITIS
     Dosage: AS REQUIRED
     Route: 055
     Dates: start: 1998
  13. NEXIUM [Suspect]
     Active Substance: ESOMEPRAZOLE MAGNESIUM
     Indication: GASTROOESOPHAGEAL REFLUX DISEASE
     Dosage: NEXIUM OTC, 22.3 MG TWO TIMES A DAY
     Route: 048
     Dates: start: 20150505
  14. XANAX [Concomitant]
     Active Substance: ALPRAZOLAM
     Indication: DEPRESSION
     Route: 048
     Dates: start: 2014
  15. XANAX [Concomitant]
     Active Substance: ALPRAZOLAM
     Indication: INSOMNIA
     Route: 048
     Dates: start: 2014
  16. BENTYL [Concomitant]
     Active Substance: DICYCLOMINE HYDROCHLORIDE
     Indication: ABDOMINAL DISTENSION
     Route: 048
     Dates: start: 2014
  17. BLOOD PRESSURE MEDICATION [Concomitant]
     Active Substance: UNSPECIFIED INGREDIENT
     Indication: BLOOD PRESSURE ABNORMAL
     Dosage: EVERY MORNING
     Route: 048
     Dates: start: 1985
  18. VESICARE [Concomitant]
     Active Substance: SOLIFENACIN SUCCINATE
     Indication: INCONTINENCE
     Route: 048
     Dates: start: 2012
  19. NEXIUM [Suspect]
     Active Substance: ESOMEPRAZOLE MAGNESIUM
     Indication: GASTROOESOPHAGEAL REFLUX DISEASE
     Route: 048
     Dates: end: 201503
  20. ADDEROL [Concomitant]
     Indication: BIPOLAR DISORDER
     Dates: end: 2014
  21. ADDEROL [Concomitant]
     Indication: DEPRESSION
     Dates: end: 2014
  22. ATARAX [Concomitant]
     Active Substance: HYDROXYZINE\HYDROXYZINE HYDROCHLORIDE
     Indication: PERICARDIAL EFFUSION

REACTIONS (27)
  - Cerebrovascular accident [Unknown]
  - Cough [Unknown]
  - Drug dose omission [Unknown]
  - Off label use [Unknown]
  - Oesophageal oedema [Unknown]
  - Adverse event [Unknown]
  - Malaise [Unknown]
  - Feeling abnormal [Unknown]
  - Throat irritation [Unknown]
  - Nausea [Unknown]
  - Haemorrhage [Unknown]
  - Insomnia [Unknown]
  - Intentional product misuse [Unknown]
  - Feeding disorder [Unknown]
  - Pain [Unknown]
  - Condition aggravated [Unknown]
  - Haemoptysis [Unknown]
  - Dyslexia [Unknown]
  - Eructation [Unknown]
  - Weight decreased [Unknown]
  - Hiatus hernia [Unknown]
  - Vomiting [Unknown]
  - Drug ineffective [Unknown]
  - Discomfort [Unknown]
  - Tooth disorder [Unknown]
  - Memory impairment [Unknown]
  - Urinary incontinence [Unknown]

NARRATIVE: CASE EVENT DATE: 20010911
